FAERS Safety Report 5889605-9 (Version None)
Quarter: 2008Q3

REPORT INFORMATION
  Report Type: 
  Country: None (occurrence: None)
  Receive Date: 20080919
  Receipt Date: 20080912
  Transmission Date: 20090109
  Serious: Yes (Hospitalization)
  Sender: FDA-Public Use
  Company Number: A0748286A

PATIENT
  Age: 56 Year
  Sex: Female
  Weight: 95.5 kg

DRUGS (3)
  1. AVANDIA [Suspect]
     Dosage: 4MG PER DAY
     Route: 048
     Dates: start: 20000101, end: 20060101
  2. AVANDARYL [Suspect]
     Dosage: 4MG PER DAY
     Route: 048
     Dates: start: 20060101, end: 20070101
  3. AMARYL [Concomitant]
     Dosage: 4MG PER DAY
     Dates: start: 20040101

REACTIONS (2)
  - CARDIAC FAILURE CONGESTIVE [None]
  - THROMBOSIS [None]
